FAERS Safety Report 4505667-5 (Version None)
Quarter: 2004Q4

REPORT INFORMATION
  Report Type: 
  Country: None (occurrence: None)
  Receive Date: 20041025
  Receipt Date: 20031208
  Transmission Date: 20050328
  Serious: Yes (Other)
  Sender: FDA-Public Use
  Company Number: US-JNJFOC-20031005931

PATIENT
  Age: 70 Year
  Sex: Female
  Weight: 77.1115 kg

DRUGS (14)
  1. REMICADE [Suspect]
     Indication: RHEUMATOID ARTHRITIS
     Dosage: INTRAVENOUS;  , 1 IN 1 DAY, INTRAVENOUS
     Route: 042
     Dates: start: 20030909
  2. FLU SHOT (INFLUENZA VACCINE) [Suspect]
     Dates: start: 20031024
  3. ACTONEL [Concomitant]
  4. ASPRIN (ACETYLSALICYLIC ACID) [Concomitant]
  5. AVALIDE (KARVEA HCT) [Concomitant]
  6. COVERA-HS [Concomitant]
  7. LEVOXYL [Concomitant]
  8. LORAZEPAM [Concomitant]
  9. PLAVIX [Concomitant]
  10. ZELNORM [Concomitant]
  11. FOLIC ACID [Concomitant]
  12. PAXIL [Concomitant]
  13. CENTRUM SILVER (CENTRUM SILVER) [Concomitant]
  14. B 12 (CYANOCOBALAMIN) INJECTION [Concomitant]

REACTIONS (7)
  - CEREBROVASCULAR ACCIDENT [None]
  - DYSPNOEA [None]
  - FLUSHING [None]
  - PARAESTHESIA [None]
  - PHARYNGITIS [None]
  - RASH [None]
  - THROAT TIGHTNESS [None]
